FAERS Safety Report 17338761 (Version 2)
Quarter: 2020Q2

REPORT INFORMATION
  Report Type: Spontaneous
  Country: JP (occurrence: JP)
  Receive Date: 20200129
  Receipt Date: 20200415
  Transmission Date: 20200713
  Serious: Yes (Death, Other)
  Sender: FDA-Public Use
  Company Number: JP-EISAI MEDICAL RESEARCH-EC-2019-058018

PATIENT
  Age: 93 Year
  Sex: Female

DRUGS (2)
  1. NIFEDIPINE CR [Suspect]
     Active Substance: NIFEDIPINE
     Indication: HYPERTENSION
     Route: 065
     Dates: start: 20181021
  2. LENVIMA [Suspect]
     Active Substance: LENVATINIB
     Indication: HEPATOCELLULAR CARCINOMA
     Route: 048
     Dates: start: 20181017, end: 20190206

REACTIONS (6)
  - Proteinuria [Recovered/Resolved]
  - Hypertension [Recovering/Resolving]
  - Decreased appetite [Recovering/Resolving]
  - Hypothyroidism [Recovered/Resolved]
  - Oedema [Not Recovered/Not Resolved]
  - Diarrhoea [Recovering/Resolving]

NARRATIVE: CASE EVENT DATE: 20181020
